FAERS Safety Report 21911847 (Version 2)
Quarter: 2023Q1

REPORT INFORMATION
  Report Type: Spontaneous
  Country: JP (occurrence: JP)
  Receive Date: 20230125
  Receipt Date: 20230221
  Transmission Date: 20230418
  Serious: Yes (Hospitalization, Other)
  Sender: FDA-Public Use
  Company Number: JP-OTSUKA-2023_001976

PATIENT
  Age: 6 Decade
  Sex: Female

DRUGS (3)
  1. REXULTI [Suspect]
     Active Substance: BREXPIPRAZOLE
     Indication: Product used for unknown indication
     Dosage: 2 (LOW-DOSE)
     Route: 048
  2. ABILIFY [Concomitant]
     Active Substance: ARIPIPRAZOLE
     Indication: Product used for unknown indication
     Dosage: UNK
     Route: 065
  3. RISPERIDONE [Concomitant]
     Active Substance: RISPERIDONE
     Indication: Product used for unknown indication
     Dosage: 1
     Route: 065

REACTIONS (6)
  - Breast cancer female [Unknown]
  - Hallucination, auditory [Unknown]
  - Speech disorder [Unknown]
  - Abnormal behaviour [Unknown]
  - Inappropriate affect [Unknown]
  - Treatment noncompliance [Unknown]
